FAERS Safety Report 14151579 (Version 1)
Quarter: 2017Q4

REPORT INFORMATION
  Report Type: Spontaneous
  Country: FR (occurrence: FR)
  Receive Date: 20171102
  Receipt Date: 20171102
  Transmission Date: 20180321
  Serious: Yes (Hospitalization, Other)
  Sender: FDA-Public Use
  Company Number: FR-BAXTER-2017BAX036832

PATIENT
  Age: 30 Year
  Sex: Male

DRUGS (4)
  1. SUPRANE [Suspect]
     Active Substance: DESFLURANE
     Indication: MAINTENANCE OF ANAESTHESIA
     Route: 055
     Dates: start: 20171005, end: 20171005
  2. REMIFENTANIL MYLAN [Suspect]
     Active Substance: REMIFENTANIL
     Indication: MAINTENANCE OF ANAESTHESIA
     Route: 042
     Dates: start: 20171005
  3. ESMERON [Suspect]
     Active Substance: ROCURONIUM BROMIDE
     Indication: INDUCTION OF ANAESTHESIA
     Route: 042
     Dates: start: 20171005
  4. ETOMIDATE HYDROCHLORIDE [Suspect]
     Active Substance: ETOMIDATE HYDROCHLORIDE
     Indication: INDUCTION OF ANAESTHESIA
     Route: 042
     Dates: start: 20171005

REACTIONS (3)
  - Renal impairment [Unknown]
  - Hyperthermia malignant [Recovered/Resolved]
  - Hypercapnia [None]

NARRATIVE: CASE EVENT DATE: 20171005
